FAERS Safety Report 23130388 (Version 1)
Quarter: 2023Q4

REPORT INFORMATION
  Report Type: Spontaneous
  Country: US (occurrence: US)
  Receive Date: 20231031
  Receipt Date: 20231031
  Transmission Date: 20240109
  Serious: Yes (Other)
  Sender: FDA-Public Use
  Company Number: US-JNJFOC-20230926507

PATIENT
  Age: 37 Year
  Sex: Male

DRUGS (1)
  1. AVEENO ANTI-ITCH CONCENTRATED [Suspect]
     Active Substance: FERRIC OXIDE RED\PRAMOXINE HYDROCHLORIDE\ZINC OXIDE
     Indication: Arthropod bite
     Dosage: APPLY 3-4 TIMES A DAY, APPLIED TO SKIN
     Route: 061
     Dates: start: 20230701, end: 20230706

REACTIONS (1)
  - Eczema [Not Recovered/Not Resolved]

NARRATIVE: CASE EVENT DATE: 20230710
